FAERS Safety Report 4511239-9 (Version None)
Quarter: 2004Q4

REPORT INFORMATION
  Report Type: 
  Country: None (occurrence: None)
  Receive Date: 20041129
  Receipt Date: 20041117
  Transmission Date: 20050328
  Serious: Yes (Death, Life-Threatening)
  Sender: FDA-Public Use
  Company Number: JP-JNJFOC-20041002822

PATIENT
  Sex: Male
  Weight: 47 kg

DRUGS (6)
  1. REMICADE [Suspect]
     Route: 042
  2. REMICADE [Suspect]
     Indication: CROHN'S DISEASE
     Route: 042
  3. IMURAN [Concomitant]
     Route: 049
  4. PENTASA [Concomitant]
     Route: 049
  5. ELENTAL [Concomitant]
     Route: 049
  6. ELENTAL [Concomitant]
     Route: 049

REACTIONS (2)
  - DRUG INEFFECTIVE [None]
  - RENAL CANCER METASTATIC [None]
